FAERS Safety Report 4911086-X (Version None)
Quarter: 2006Q1

REPORT INFORMATION
  Report Type: 
  Country: None (occurrence: None)
  Receive Date: 20060209
  Receipt Date: 20060127
  Transmission Date: 20060701
  Serious: Yes (Hospitalization)
  Sender: FDA-Public Use
  Company Number: 2006015295

PATIENT
  Age: 60 Year
  Sex: Female

DRUGS (3)
  1. RIFABUTIN (RIFABUTIN) [Suspect]
     Indication: ATYPICAL MYCOBACTERIAL INFECTION
     Dosage: ORAL
     Route: 048
     Dates: start: 20051201, end: 20051208
  2. CLARITHROMYCIN [Suspect]
     Indication: ATYPICAL MYCOBACTERIAL INFECTION
     Dosage: ORAL
     Route: 048
     Dates: start: 20051201, end: 20051210
  3. MYAMBUTOL [Suspect]
     Indication: ATYPICAL MYCOBACTERIAL INFECTION
     Dosage: ORAL
     Route: 048
     Dates: start: 20051201, end: 20051210

REACTIONS (7)
  - ARTHRALGIA [None]
  - EOSINOPHILIA [None]
  - INFLUENZA LIKE ILLNESS [None]
  - MYALGIA [None]
  - PYREXIA [None]
  - RASH MACULO-PAPULAR [None]
  - TOXIC SKIN ERUPTION [None]
